FAERS Safety Report 16077285 (Version 1)
Quarter: 2019Q1

REPORT INFORMATION
  Report Type: Report from Study
  Country: TW (occurrence: TW)
  Receive Date: 20190315
  Receipt Date: 20190315
  Transmission Date: 20190418
  Serious: Yes (Death, Hospitalization, Other)
  Sender: FDA-Public Use
  Company Number: TW-PFIZER INC-2019101286

PATIENT
  Age: 45 Year
  Sex: Female

DRUGS (2)
  1. LORLATINIB [Suspect]
     Active Substance: LORLATINIB
     Indication: LUNG CARCINOMA CELL TYPE UNSPECIFIED STAGE IV
     Dosage: 100 MG, 1X/DAY (QD)
     Route: 048
     Dates: start: 20180918, end: 20181227
  2. LORLATINIB [Suspect]
     Active Substance: LORLATINIB
     Dosage: 100 MG, 1X/DAY (QD)
     Route: 048
     Dates: start: 20190116

REACTIONS (12)
  - Subarachnoid haemorrhage [Unknown]
  - Death [Fatal]
  - Mental status changes [Unknown]
  - Aphasia [Unknown]
  - Pleural effusion [Unknown]
  - Altered state of consciousness [Unknown]
  - Tachypnoea [Unknown]
  - Anaemia [Unknown]
  - Pyrexia [Unknown]
  - Cerebral artery thrombosis [Unknown]
  - Thrombocytopenia [Unknown]
  - Basilar artery thrombosis [Unknown]

NARRATIVE: CASE EVENT DATE: 20181226
